FAERS Safety Report 21085538 (Version 1)
Quarter: 2022Q3

REPORT INFORMATION
  Report Type: Spontaneous
  Country: ZA (occurrence: ZA)
  Receive Date: 20220715
  Receipt Date: 20220715
  Transmission Date: 20221026
  Serious: Yes (Other)
  Sender: FDA-Public Use
  Company Number: ZA-PFIZER INC-PV202200019976

PATIENT
  Age: 33 Year
  Sex: Female

DRUGS (4)
  1. ENBREL [Suspect]
     Active Substance: ETANERCEPT
     Indication: Rheumatoid arthritis
     Dosage: 50 MG, WEEKLY (REPEAT 6 TIMES)
     Route: 058
     Dates: end: 202112
  2. METHOTREXATE [Concomitant]
     Active Substance: METHOTREXATE
     Indication: Rheumatoid arthritis
     Dosage: 25 MG, WEEKLY
     Dates: start: 202001
  3. SULFASALAZINE [Concomitant]
     Active Substance: SULFASALAZINE
     Indication: Rheumatoid arthritis
     Dosage: 1 G, 2X/DAY
     Dates: start: 202207
  4. HUMIRA [Concomitant]
     Active Substance: ADALIMUMAB
     Dosage: 40 MG

REACTIONS (6)
  - Rheumatoid arthritis [Unknown]
  - Blood creatinine decreased [Unknown]
  - Platelet count increased [Unknown]
  - White blood cell count increased [Unknown]
  - Apathy [Unknown]
  - Alanine aminotransferase increased [Unknown]

NARRATIVE: CASE EVENT DATE: 20210113
